FAERS Safety Report 25633867 (Version 4)
Quarter: 2025Q4

REPORT INFORMATION
  Report Type: Spontaneous
  Country: US (occurrence: US)
  Receive Date: 20250801
  Receipt Date: 20251114
  Transmission Date: 20260118
  Serious: Yes (Other)
  Sender: SANOFI AVENTIS
  Company Number: US-SA-2025SA223958

PATIENT
  Age: 39 Year
  Sex: Female

DRUGS (1)
  1. DUPIXENT [Suspect]
     Active Substance: DUPILUMAB
     Indication: Asthma
     Dosage: 300 MG, QOW
     Route: 058
     Dates: start: 20250626

REACTIONS (7)
  - Pulmonary congestion [Recovering/Resolving]
  - Secretion discharge [Recovering/Resolving]
  - Helicobacter infection [Unknown]
  - Cough [Unknown]
  - Wheezing [Unknown]
  - Oropharyngeal pain [Unknown]
  - Product use in unapproved indication [Unknown]

NARRATIVE: CASE EVENT DATE: 20250101
